FAERS Safety Report 9330513 (Version 2)
Quarter: 2013Q3

REPORT INFORMATION
  Report Type: Spontaneous
  Country: US (occurrence: US)
  Receive Date: 20130605
  Receipt Date: 20130724
  Transmission Date: 20140515
  Serious: Yes (Hospitalization)
  Sender: FDA-Public Use
  Company Number: US-B.I. PHARMACEUTICALS,INC./RIDGEFIELD-2013-BI-15368BP

PATIENT
  Age: 79 Year
  Sex: Female
  Weight: 84 kg

DRUGS (4)
  1. PRADAXA [Suspect]
     Indication: ATRIAL FIBRILLATION
     Dosage: 300 MG
     Route: 048
     Dates: start: 2012
  2. ARMOUR THYROID [Concomitant]
     Indication: HYPOTHYROIDISM
     Dosage: 60 MG
     Route: 048
  3. DIOVAN [Concomitant]
     Indication: HYPERTENSION
     Route: 048
  4. INDAPAMIDE [Concomitant]
     Indication: HYPERTENSION
     Dosage: 2.5 MG
     Route: 048

REACTIONS (5)
  - Rash generalised [Recovered/Resolved]
  - Chest discomfort [Recovered/Resolved]
  - Swelling face [Recovered/Resolved]
  - Rash [Not Recovered/Not Resolved]
  - Rash [Recovered/Resolved]
